FAERS Safety Report 9551466 (Version 1)
Quarter: 2013Q3

REPORT INFORMATION
  Report Type: Spontaneous
  Country: US (occurrence: US)
  Receive Date: 20130925
  Receipt Date: 20130925
  Transmission Date: 20140515
  Serious: Yes (Death)
  Sender: FDA-Public Use
  Company Number: US-AMGEN-USASP2013066928

PATIENT
  Age: 69 Year
  Sex: Male

DRUGS (5)
  1. ENBREL [Suspect]
     Indication: PRODUCT USED FOR UNKNOWN INDICATION
     Dosage: 50 MG, ONCE A WEEK
     Route: 065
  2. METOPROLOL [Concomitant]
     Dosage: 25 MG, UNK
  3. CILOSTAZOL [Concomitant]
     Dosage: 100 MG, UNK
  4. NIFEDIPINE [Concomitant]
     Dosage: 30 MG, UNK
  5. CELEBREX [Concomitant]
     Dosage: 200 MG, UNK

REACTIONS (1)
  - Death [Fatal]
